FAERS Safety Report 14954032 (Version 1)
Quarter: 2018Q2

REPORT INFORMATION
  Report Type: Spontaneous
  Country: FR (occurrence: FR)
  Receive Date: 20180530
  Receipt Date: 20180530
  Transmission Date: 20180711
  Serious: Yes (Hospitalization)
  Sender: FDA-Public Use
  Company Number: FR-009507513-1805FRA014387

PATIENT
  Age: 60 Year
  Sex: Male

DRUGS (2)
  1. CUBICIN [Suspect]
     Active Substance: DAPTOMYCIN
     Indication: NOSOCOMIAL INFECTION
     Dosage: POSOLOGIE INCONNUE
     Route: 042
     Dates: start: 20140502, end: 20140515
  2. TAZOCILLINE [Suspect]
     Active Substance: PIPERACILLIN SODIUM\TAZOBACTAM SODIUM
     Indication: NOSOCOMIAL INFECTION
     Dosage: POSOLOGIE INCONNUE
     Route: 042
     Dates: start: 20140429, end: 20140515

REACTIONS (2)
  - Pyrexia [Recovered/Resolved]
  - Inflammation [Recovered/Resolved]

NARRATIVE: CASE EVENT DATE: 20140511
